FAERS Safety Report 17948693 (Version 1)
Quarter: 2020Q2

REPORT INFORMATION
  Report Type: Spontaneous
  Country: US (occurrence: US)
  Receive Date: 20200626
  Receipt Date: 20200626
  Transmission Date: 20200714
  Serious: Yes (Hospitalization)
  Sender: FDA-Public Use
  Company Number: None

PATIENT
  Age: 77 Year
  Sex: Female
  Weight: 35 kg

DRUGS (7)
  1. ASPIRIN 81MG [Concomitant]
     Active Substance: ASPIRIN
     Dates: start: 20200220, end: 20200302
  2. OXYCODONE [Suspect]
     Active Substance: OXYCODONE
     Indication: PAIN
     Route: 048
     Dates: start: 20200222, end: 20200225
  3. DIAZEPAM 10MG [Concomitant]
     Active Substance: DIAZEPAM
     Dates: start: 20200220, end: 20200226
  4. POTASSIUM CHLORIDE 40MEQ [Concomitant]
     Dates: start: 20200202, end: 20200302
  5. AMLODIPINE [Concomitant]
     Active Substance: AMLODIPINE BESYLATE
     Dates: start: 20200220, end: 20200302
  6. NUCYNTA [Suspect]
     Active Substance: TAPENTADOL HYDROCHLORIDE
  7. FAMOTIDINE 20MG [Concomitant]
     Active Substance: FAMOTIDINE
     Dates: start: 20200220, end: 20200302

REACTIONS (1)
  - Lethargy [None]

NARRATIVE: CASE EVENT DATE: 20200225
